FAERS Safety Report 24540992 (Version 6)
Quarter: 2024Q4

REPORT INFORMATION
  Report Type: Spontaneous
  Country: PT (occurrence: PT)
  Receive Date: 20241023
  Receipt Date: 20241213
  Transmission Date: 20250115
  Serious: Yes (Death, Other)
  Sender: ELI LILLY AND COMPANY
  Company Number: PT-ABBVIE-5960003

PATIENT

DRUGS (109)
  1. FLUOXETINE HYDROCHLORIDE [Interacting]
     Active Substance: FLUOXETINE HYDROCHLORIDE
     Indication: Product used for unknown indication
     Dosage: UNK UNK, UNKNOWN
     Route: 065
  2. FLUOXETINE HYDROCHLORIDE [Interacting]
     Active Substance: FLUOXETINE HYDROCHLORIDE
     Dosage: UNK UNK, UNKNOWN
     Route: 065
  3. NITROGLYCERIN [Interacting]
     Active Substance: NITROGLYCERIN
     Indication: Product used for unknown indication
     Dosage: UNK, UNKNOWN
     Route: 065
  4. ADALIMUMAB [Interacting]
     Active Substance: ADALIMUMAB
     Indication: Product used for unknown indication
     Dosage: 35 MG, UNKNOWN
     Route: 065
  5. PROPRANOLOL HYDROCHLORIDE [Interacting]
     Active Substance: PROPRANOLOL HYDROCHLORIDE
     Indication: Product used for unknown indication
     Dosage: UNK, UNKNOWN
     Route: 065
  6. DILTIAZEM HYDROCHLORIDE [Interacting]
     Active Substance: DILTIAZEM HYDROCHLORIDE
     Indication: Product used for unknown indication
     Dosage: 120 MG, UNKNOWN
     Route: 065
  7. ESOMEPRAZOLE SODIUM [Interacting]
     Active Substance: ESOMEPRAZOLE SODIUM
     Indication: Product used for unknown indication
     Dosage: UNK, UNKNOWN
     Route: 065
  8. TRAMADOL HYDROCHLORIDE [Interacting]
     Active Substance: TRAMADOL HYDROCHLORIDE
     Indication: Product used for unknown indication
     Dosage: UNK, UNKNOWN
     Route: 065
  9. FLUVASTATIN SODIUM [Interacting]
     Active Substance: FLUVASTATIN SODIUM
     Indication: Product used for unknown indication
     Dosage: UNK, UNKNOWN
     Route: 065
  10. VENLAFAXINE HYDROCHLORIDE [Interacting]
     Active Substance: VENLAFAXINE HYDROCHLORIDE
     Indication: Product used for unknown indication
     Dosage: 100 MG, UNKNOWN
     Route: 065
  11. VENLAFAXINE HYDROCHLORIDE [Interacting]
     Active Substance: VENLAFAXINE HYDROCHLORIDE
     Dosage: UNK
     Route: 065
  12. RIBAVIRIN [Interacting]
     Active Substance: RIBAVIRIN
     Indication: Product used for unknown indication
     Dosage: 5 MG, UNKNOWN
     Route: 065
  13. EZETIMIBE [Interacting]
     Active Substance: EZETIMIBE
     Indication: Product used for unknown indication
     Dosage: UNK, UNKNOWN
     Route: 048
  14. MYCOPHENOLATE SODIUM [Interacting]
     Active Substance: MYCOPHENOLATE SODIUM
     Indication: Product used for unknown indication
     Dosage: UNK, UNKNOWN
     Route: 065
  15. ASPIRIN [Interacting]
     Active Substance: ASPIRIN
     Indication: Product used for unknown indication
     Dosage: 100 MG, UNKNOWN
     Route: 065
  16. ACETAMINOPHEN [Interacting]
     Active Substance: ACETAMINOPHEN
     Indication: Product used for unknown indication
     Dosage: UNK, UNKNOWN
     Route: 065
  17. ALENDRONATE SODIUM [Interacting]
     Active Substance: ALENDRONATE SODIUM
     Indication: Product used for unknown indication
     Dosage: UNK, UNKNOWN
     Route: 065
  18. ESCHERICHIA COLI [Interacting]
     Active Substance: ESCHERICHIA COLI
     Indication: Product used for unknown indication
     Dosage: UNK, UNKNOWN
     Route: 065
  19. TOCILIZUMAB [Interacting]
     Active Substance: TOCILIZUMAB
     Indication: Product used for unknown indication
     Dosage: UNK, UNKNOWN
     Route: 065
  20. GINKGO [Interacting]
     Active Substance: GINKGO
     Indication: Product used for unknown indication
     Dosage: 120 MG, UNKNOWN
     Route: 065
  21. GINKGO [Interacting]
     Active Substance: GINKGO
     Dosage: 25 UNK
     Route: 065
  22. GINKGO [Interacting]
     Active Substance: GINKGO
     Dosage: 2.5 MG, UNKNOWN
     Route: 065
  23. PENTAZOCINE LACTATE [Interacting]
     Active Substance: PENTAZOCINE LACTATE
     Indication: Product used for unknown indication
     Dosage: 100 MG, UNKNOWN
     Route: 065
  24. POTASSIUM IODIDE [Interacting]
     Active Substance: POTASSIUM IODIDE
     Indication: Product used for unknown indication
     Dosage: UNK, UNKNOWN
     Route: 065
  25. HYDROCHLOROTHIAZIDE [Interacting]
     Active Substance: HYDROCHLOROTHIAZIDE
     Indication: Product used for unknown indication
     Dosage: UNK, UNKNOWN
     Route: 065
  26. ATORVASTATIN CALCIUM [Interacting]
     Active Substance: ATORVASTATIN CALCIUM
     Indication: Product used for unknown indication
     Dosage: UNK, UNKNOWN
     Route: 065
  27. TAMSULOSIN HYDROCHLORIDE [Interacting]
     Active Substance: TAMSULOSIN HYDROCHLORIDE
     Indication: Product used for unknown indication
     Dosage: UNK, UNKNOWN
     Route: 065
  28. SIMVASTATIN [Interacting]
     Active Substance: SIMVASTATIN
     Indication: Product used for unknown indication
     Dosage: UNK, UNKNOWN
     Route: 048
  29. BUPRENORPHINE HYDROCHLORIDE [Interacting]
     Active Substance: BUPRENORPHINE HYDROCHLORIDE
     Indication: Product used for unknown indication
     Dosage: 35 G, QH
     Route: 062
  30. FENOFIBRATE [Interacting]
     Active Substance: FENOFIBRATE
     Indication: Product used for unknown indication
     Dosage: 100 MG, UNKNOWN
     Route: 065
  31. NIMESULIDE [Interacting]
     Active Substance: NIMESULIDE
     Indication: Product used for unknown indication
     Dosage: UNK, UNKNOWN
     Route: 065
  32. ANASTROZOLE [Interacting]
     Active Substance: ANASTROZOLE
     Indication: Product used for unknown indication
     Dosage: UNK, UNKNOWN
     Route: 065
  33. ESCITALOPRAM [Interacting]
     Active Substance: ESCITALOPRAM OXALATE
     Indication: Product used for unknown indication
     Dosage: 5 MG, UNKNOWN
     Route: 065
  34. PITAVASTATIN CALCIUM [Interacting]
     Active Substance: PITAVASTATIN CALCIUM
     Indication: Product used for unknown indication
     Dosage: UNK, UNKNOWN
     Route: 065
  35. HUMAN IMMUNOGLOBULIN G [Interacting]
     Active Substance: HUMAN IMMUNOGLOBULIN G
     Indication: Product used for unknown indication
     Dosage: 50 MG, UNKNOWN
     Route: 065
  36. ALISKIREN HEMIFUMARATE [Interacting]
     Active Substance: ALISKIREN HEMIFUMARATE
     Indication: Product used for unknown indication
     Dosage: UNK, UNKNOWN
     Route: 065
  37. CELECOXIB [Interacting]
     Active Substance: CELECOXIB
     Indication: Product used for unknown indication
     Dosage: 100 MG (GINGIVAL SOLUTION), UNKNOWN
     Route: 065
  38. IODINE [Interacting]
     Active Substance: IODINE
     Indication: Product used for unknown indication
     Dosage: UNK, UNKNOWN
     Route: 065
  39. ZOMETA [Interacting]
     Active Substance: ZOLEDRONIC ACID
     Indication: Product used for unknown indication
     Dosage: 1500 MG, UNKNOWN
     Route: 065
  40. SODIUM PICOSULFATE [Interacting]
     Active Substance: SODIUM PICOSULFATE
     Indication: Product used for unknown indication
     Dosage: 35 G, UNKNOWN
     Route: 062
  41. PRAVASTATIN SODIUM [Interacting]
     Active Substance: PRAVASTATIN SODIUM
     Indication: Product used for unknown indication
     Dosage: UNK, UNKNOWN
     Route: 065
  42. TELMISARTAN [Interacting]
     Active Substance: TELMISARTAN
     Indication: Product used for unknown indication
     Dosage: UNK, UNKNOWN
     Route: 065
  43. NILOTINIB HYDROCHLORIDE MONOHYDRATE [Interacting]
     Active Substance: NILOTINIB HYDROCHLORIDE MONOHYDRATE
     Indication: Product used for unknown indication
     Dosage: UNK, UNKNOWN
     Route: 065
  44. PENTOXIFYLLINE [Interacting]
     Active Substance: PENTOXIFYLLINE
     Indication: Product used for unknown indication
     Dosage: 400 MG, UNKNOWN
     Route: 065
  45. SOFOSBUVIR [Interacting]
     Active Substance: SOFOSBUVIR
     Indication: Product used for unknown indication
     Dosage: UNK, UNKNOWN
     Route: 065
  46. DONEPEZIL HYDROCHLORIDE [Interacting]
     Active Substance: DONEPEZIL HYDROCHLORIDE
     Indication: Product used for unknown indication
     Dosage: 5 MG, UNKNOWN
     Route: 048
  47. CILAZAPRIL ANHYDROUS [Interacting]
     Active Substance: CILAZAPRIL ANHYDROUS
     Indication: Product used for unknown indication
     Dosage: UNK, UNKNOWN
     Route: 065
  48. HYDROMORPHONE HYDROCHLORIDE [Interacting]
     Active Substance: HYDROMORPHONE HYDROCHLORIDE
     Indication: Product used for unknown indication
     Dosage: UNK, UNKNOWN
     Route: 065
  49. NORFLOXACIN [Interacting]
     Active Substance: NORFLOXACIN
     Indication: Product used for unknown indication
     Dosage: UNK, UNKNOWN
     Route: 065
  50. NORFLOXACIN [Interacting]
     Active Substance: NORFLOXACIN
     Dosage: 120 MG
     Route: 065
  51. VERAPAMIL HYDROCHLORIDE [Interacting]
     Active Substance: VERAPAMIL HYDROCHLORIDE
     Indication: Product used for unknown indication
     Dosage: 120 MG, UNKNOWN
     Route: 065
  52. ENOXAPARIN SODIUM [Interacting]
     Active Substance: ENOXAPARIN SODIUM
     Indication: Product used for unknown indication
     Dosage: UNK, UNKNOWN
     Route: 065
  53. LEDIPASVIR [Interacting]
     Active Substance: LEDIPASVIR
     Indication: Product used for unknown indication
     Dosage: UNK, UNKNOWN
     Route: 065
  54. ETANERCEPT [Interacting]
     Active Substance: ETANERCEPT
     Indication: Product used for unknown indication
     Dosage: UNK, UNKNOWN
     Route: 065
  55. IMATINIB MESYLATE [Interacting]
     Active Substance: IMATINIB MESYLATE
     Indication: Product used for unknown indication
     Dosage: UNK, UNKNOWN
     Route: 065
  56. INDOMETHACIN [Interacting]
     Active Substance: INDOMETHACIN
     Indication: Product used for unknown indication
     Dosage: 100 MG, UNKNOWN
     Route: 065
  57. ACECLOFENAC [Interacting]
     Active Substance: ACECLOFENAC
     Indication: Product used for unknown indication
     Dosage: 100 MG, UNKNOWN
     Route: 065
  58. LEVOCETIRIZINE DIHYDROCHLORIDE [Interacting]
     Active Substance: LEVOCETIRIZINE DIHYDROCHLORIDE
     Indication: Product used for unknown indication
     Dosage: 5 MG, UNKNOWN
     Route: 065
  59. BRINZOLAMIDE [Interacting]
     Active Substance: BRINZOLAMIDE
     Indication: Product used for unknown indication
     Dosage: 100 MG, UNKNOWN
     Route: 065
  60. EXEMESTANE [Interacting]
     Active Substance: EXEMESTANE
     Indication: Product used for unknown indication
     Dosage: 35 G, UNKNOWN
     Route: 065
  61. VORTIOXETINE [Interacting]
     Active Substance: VORTIOXETINE
     Indication: Product used for unknown indication
     Dosage: UNK, UNKNOWN
     Route: 065
  62. LETROZOLE [Interacting]
     Active Substance: LETROZOLE
     Indication: Product used for unknown indication
     Dosage: UNK, UNKNOWN
     Route: 065
  63. DOCETAXEL [Interacting]
     Active Substance: DOCETAXEL
     Indication: Product used for unknown indication
     Dosage: 100 MG, UNKNOWN
     Route: 065
  64. PREGABALIN [Interacting]
     Active Substance: PREGABALIN
     Indication: Product used for unknown indication
     Dosage: 50 MG, UNKNOWN
     Route: 065
  65. PREGABALIN [Interacting]
     Active Substance: PREGABALIN
     Dosage: 120 MG, UNKNOWN
     Route: 065
  66. SERTRALINE HYDROCHLORIDE [Interacting]
     Active Substance: SERTRALINE HYDROCHLORIDE
     Indication: Product used for unknown indication
     Dosage: UNK UNK, UNKNOWN
     Route: 065
  67. CODEINE PHOSPHATE [Interacting]
     Active Substance: CODEINE PHOSPHATE
     Indication: Product used for unknown indication
     Dosage: UNK, UNKNOWN
     Route: 065
  68. BISOPROLOL FUMARATE [Interacting]
     Active Substance: BISOPROLOL FUMARATE
     Indication: Product used for unknown indication
     Dosage: 2.5 MG, UNKNOWN
     Route: 065
  69. DUTASTERIDE [Interacting]
     Active Substance: DUTASTERIDE
     Indication: Product used for unknown indication
     Dosage: 100 MG, UNKNOWN
     Route: 065
  70. GLUCOSAMINE SULFATE [Interacting]
     Active Substance: GLUCOSAMINE SULFATE
     Indication: Product used for unknown indication
     Dosage: 1500 MG, UNKNOWN
     Route: 065
  71. SERTRALINE [Interacting]
     Active Substance: SERTRALINE HYDROCHLORIDE
     Indication: Product used for unknown indication
     Dosage: UNK, UNKNOWN
     Route: 065
  72. SERTRALINE [Interacting]
     Active Substance: SERTRALINE HYDROCHLORIDE
     Dosage: UNK, UNKNOWN
     Route: 065
  73. HUMAN RABIES VIRUS IMMUNE GLOBULIN [Interacting]
     Active Substance: HUMAN RABIES VIRUS IMMUNE GLOBULIN
     Indication: Product used for unknown indication
     Dosage: UNK, UNKNOWN
     Route: 065
  74. AGOMELATINE [Interacting]
     Active Substance: AGOMELATINE
     Indication: Product used for unknown indication
     Dosage: UNK, UNKNOWN
     Route: 065
  75. ASPIRIN\PENTAZOCINE [Interacting]
     Active Substance: ASPIRIN\PENTAZOCINE
     Indication: Product used for unknown indication
     Dosage: 100 MG, UNKNOWN
     Route: 065
  76. ALENDRONIC ACID [Interacting]
     Active Substance: ALENDRONIC ACID
     Indication: Product used for unknown indication
     Dosage: UNK UNK, UNKNOWN
     Route: 065
  77. ASPIRIN [Interacting]
     Active Substance: ASPIRIN
     Indication: Product used for unknown indication
     Dosage: 100 MG, UNKNOWN
     Route: 065
  78. CHOLECALCIFEROL [Interacting]
     Active Substance: CHOLECALCIFEROL
     Indication: Product used for unknown indication
     Dosage: 50 MG, UNKNOWN
     Route: 065
  79. CHOLECALCIFEROL [Interacting]
     Active Substance: CHOLECALCIFEROL
     Dosage: 22400 IU,
     Route: 065
  80. CHOLECALCIFEROL [Interacting]
     Active Substance: CHOLECALCIFEROL
     Dosage: 22400 IU,
     Route: 065
  81. CODEINE [Interacting]
     Active Substance: CODEINE
     Indication: Product used for unknown indication
     Dosage: UNK UNK, UNKNOWN
     Route: 065
  82. CODEINE SULFATE [Interacting]
     Active Substance: CODEINE SULFATE
     Indication: Product used for unknown indication
     Dosage: UNK UNK, UNKNOWN
     Route: 065
  83. DOMPERIDONE [Interacting]
     Active Substance: DOMPERIDONE
     Indication: Product used for unknown indication
     Dosage: UNK UNK, UNKNOWN
     Route: 065
  84. DOMPERIDONE MALEATE [Interacting]
     Active Substance: DOMPERIDONE MALEATE
     Indication: Product used for unknown indication
     Dosage: UNK UNK, UNKNOWN
     Route: 065
  85. DOMPERIDONE MALEATE [Interacting]
     Active Substance: DOMPERIDONE MALEATE
     Dosage: 1500 MG
     Route: 065
  86. ESCITALOPRAM OXALATE [Interacting]
     Active Substance: ESCITALOPRAM OXALATE
     Indication: Product used for unknown indication
     Dosage: 5 MG, UNKNOWN
     Route: 065
  87. GINKGO [Interacting]
     Active Substance: GINKGO
     Indication: Product used for unknown indication
     Dosage: UNK UNK, UNKNOWN
     Route: 065
  88. NITROGLYCERIN [Interacting]
     Active Substance: NITROGLYCERIN
     Indication: Product used for unknown indication
     Dosage: UNK UNK, UNKNOWN
     Route: 065
  89. IBANDRONIC ACID [Interacting]
     Active Substance: IBANDRONIC ACID
     Indication: Product used for unknown indication
     Dosage: UNK UNK, UNKNOWN
     Route: 065
  90. INDOMETHACIN SODIUM [Interacting]
     Active Substance: INDOMETHACIN SODIUM
     Indication: Product used for unknown indication
     Dosage: 100 MG, UNKNOWN
     Route: 065
  91. LEVOCETIRIZINE HYDROCHLORIDE [Interacting]
     Active Substance: LEVOCETIRIZINE HYDROCHLORIDE
     Indication: Product used for unknown indication
     Dosage: 5 MG, UNKNOWN
     Route: 065
  92. MIRTAZAPINE [Interacting]
     Active Substance: MIRTAZAPINE
     Indication: Product used for unknown indication
     Dosage: UNK UNK, UNKNOWN
     Route: 065
  93. MYCOPHENOLIC ACID [Interacting]
     Active Substance: MYCOPHENOLIC ACID
     Indication: Product used for unknown indication
     Dosage: 50 MG, UNKNOWN
     Route: 065
  94. MYCOPHENOLIC ACID [Interacting]
     Active Substance: MYCOPHENOLIC ACID
     Indication: Product used for unknown indication
     Dosage: UNK, UNKNOWN
     Route: 065
  95. NITROGLYCERIN [Interacting]
     Active Substance: NITROGLYCERIN
     Indication: Product used for unknown indication
     Dosage: UNK, UNKNOWN
     Route: 065
  96. ZOLEDRONIC ACID [Interacting]
     Active Substance: ZOLEDRONIC ACID
     Indication: Product used for unknown indication
     Dosage: UNK, UNKNOWN
     Route: 065
  97. CELEBREX [Interacting]
     Active Substance: CELECOXIB
     Indication: Product used for unknown indication
     Dosage: UNK, UNKNOWN
     Route: 065
  98. IMATINIB MESYLATE [Interacting]
     Active Substance: IMATINIB MESYLATE
     Indication: Product used for unknown indication
     Dosage: UNK, UNKNOWN
     Route: 065
  99. FLUVASTATIN SODIUM [Interacting]
     Active Substance: FLUVASTATIN SODIUM
     Indication: Product used for unknown indication
     Dosage: UNK, UNKNOWN
     Route: 065
  100. DOMPERIDONE MALEATE [Interacting]
     Active Substance: DOMPERIDONE MALEATE
     Indication: Product used for unknown indication
     Dosage: UNK, UNKNOWN
     Route: 065
  101. DOMPERIDONE MALEATE [Interacting]
     Active Substance: DOMPERIDONE MALEATE
     Dosage: UNK, UNKNOWN
     Route: 065
  102. DUTASTERIDE [Interacting]
     Active Substance: DUTASTERIDE
     Indication: Product used for unknown indication
     Dosage: 100 MG, UNKNOWN
     Route: 065
  103. PRAVASTATIN SODIUM [Interacting]
     Active Substance: PRAVASTATIN SODIUM
     Indication: Product used for unknown indication
     Dosage: UNK, UNKNOWN
     Route: 065
  104. DONEPEZIL [Interacting]
     Active Substance: DONEPEZIL
     Indication: Product used for unknown indication
     Dosage: UNK, UNKNOWN
     Route: 048
  105. CODEINE PHOSPHATE [Interacting]
     Active Substance: CODEINE PHOSPHATE
     Indication: Product used for unknown indication
     Dosage: UNK, UNKNOWN
     Route: 065
  106. TAMSULOSIN HYDROCHLORIDE [Interacting]
     Active Substance: TAMSULOSIN HYDROCHLORIDE
     Indication: Product used for unknown indication
     Dosage: UNK, UNKNOWN
     Route: 065
  107. INDOMETHACIN SODIUM [Interacting]
     Active Substance: INDOMETHACIN SODIUM
     Indication: Product used for unknown indication
     Dosage: 100 MG (GINGIVAL SOLUTION), UNKNOWN
     Route: 065
  108. HYDROMORPHONE [Interacting]
     Active Substance: HYDROMORPHONE
     Indication: Product used for unknown indication
     Dosage: UNK, UNKNOWN
     Route: 065
  109. NORFLOXACIN [Interacting]
     Active Substance: NORFLOXACIN
     Indication: Product used for unknown indication
     Dosage: 120 MG, UNKNOWN
     Route: 065

REACTIONS (53)
  - Cardio-respiratory arrest [Fatal]
  - Haematemesis [Fatal]
  - Nausea [Fatal]
  - Chills [Fatal]
  - Amaurosis fugax [Fatal]
  - Haemorrhagic stroke [Fatal]
  - Dyspnoea [Fatal]
  - Ocular discomfort [Fatal]
  - Haemorrhagic stroke [Fatal]
  - Sepsis [Fatal]
  - Blindness [Fatal]
  - Arthralgia [Fatal]
  - Altered state of consciousness [Fatal]
  - Ascites [Fatal]
  - Fall [Fatal]
  - Amaurosis fugax [Fatal]
  - Abdominal pain [Fatal]
  - Pruritus [Fatal]
  - Pruritus [Fatal]
  - Diarrhoea [Fatal]
  - Insomnia [Fatal]
  - Dizziness [Fatal]
  - Arthralgia [Fatal]
  - Tachycardia [Fatal]
  - Head discomfort [Fatal]
  - Cardio-respiratory arrest [Fatal]
  - Fatigue [Fatal]
  - Coma [Fatal]
  - Generalised oedema [Fatal]
  - Diplopia [Fatal]
  - Decreased appetite [Fatal]
  - Asthenia [Fatal]
  - Sepsis [Fatal]
  - Haematuria [Fatal]
  - Syncope [Fatal]
  - Abdominal pain upper [Fatal]
  - Headache [Fatal]
  - Somnolence [Fatal]
  - Malaise [Fatal]
  - Photophobia [Fatal]
  - Vision blurred [Fatal]
  - Arthralgia [Fatal]
  - Vomiting [Fatal]
  - Tinnitus [Fatal]
  - Myalgia [Fatal]
  - Pyrexia [Fatal]
  - Urinary tract disorder [Fatal]
  - Cough [Fatal]
  - Presyncope [Fatal]
  - Blood pressure increased [Fatal]
  - Somnolence [Fatal]
  - Drug interaction [Fatal]
  - Eye pain [Fatal]
